FAERS Safety Report 25324326 (Version 1)
Quarter: 2025Q2

REPORT INFORMATION
  Report Type: Spontaneous
  Country: US (occurrence: None)
  Receive Date: 20250516
  Receipt Date: 20250516
  Transmission Date: 20250717
  Serious: Yes (Other)
  Sender: FDA-CTU
  Company Number: None

PATIENT
  Sex: Male

DRUGS (8)
  1. CAPECITABINE [Suspect]
     Active Substance: CAPECITABINE
     Indication: Rectosigmoid cancer
     Route: 048
     Dates: start: 20241119
  2. BEVACIZUMAB [Suspect]
     Active Substance: BEVACIZUMAB
  3. ALLOPURINOL [Concomitant]
     Active Substance: ALLOPURINOL
  4. AMLODIPINE [Concomitant]
     Active Substance: AMLODIPINE BESYLATE
  5. ATORVASTATIN [Concomitant]
     Active Substance: ATORVASTATIN
  6. BREO ELLIPTA INH [Concomitant]
  7. MVASI [Concomitant]
     Active Substance: BEVACIZUMAB-AWWB
  8. VENTOLIN HFA [Concomitant]
     Active Substance: ALBUTEROL SULFATE

REACTIONS (5)
  - Platelet count decreased [None]
  - Palmar-plantar erythrodysaesthesia syndrome [None]
  - Rectal haemorrhage [None]
  - Chronic kidney disease [None]
  - Fatigue [None]
